FAERS Safety Report 9056076 (Version 3)
Quarter: 2013Q2

REPORT INFORMATION
  Report Type: Spontaneous
  Country: US (occurrence: US)
  Receive Date: 20130205
  Receipt Date: 20130613
  Transmission Date: 20140414
  Serious: Yes (Hospitalization, Disabling, Other)
  Sender: FDA-Public Use
  Company Number: US-ELI_LILLY_AND_COMPANY-US201302001041

PATIENT
  Age: 67 Year
  Sex: Female
  Weight: 93.88 kg

DRUGS (12)
  1. PROZAC [Suspect]
     Indication: DEPRESSION
     Dosage: 40 MG, QD
     Route: 048
     Dates: start: 20120426, end: 201210
  2. PROZAC [Suspect]
     Dosage: 20 MG, QD
  3. LYRICA [Concomitant]
     Indication: FIBROMYALGIA
     Dosage: 100 MG, BID
     Route: 048
     Dates: start: 2007
  4. LYRICA [Concomitant]
     Dosage: 50 MG, QD
  5. PRISTIQ [Concomitant]
     Indication: DEPRESSION
     Dosage: 50 MG, QD
     Route: 048
     Dates: start: 2007
  6. PRISTIQ [Concomitant]
     Dosage: 75 MG, TID
  7. METFORMIN [Concomitant]
     Indication: TYPE 2 DIABETES MELLITUS
     Dosage: 1000 MG, BID
  8. HYDROCODONE [Concomitant]
     Indication: PAIN
     Dosage: UNK, PRN
  9. ZYRTEC [Concomitant]
     Dosage: 10 MG, QD
     Route: 048
  10. BIOTIN [Concomitant]
     Dosage: 5000 UG, UNKNOWN
  11. CALCIUM+VIT D                      /00944201/ [Concomitant]
     Dosage: UNK, UNKNOWN
  12. LEVOTHYROXIN [Concomitant]
     Dosage: 150 UG, UNKNOWN

REACTIONS (10)
  - Spinal fracture [Recovered/Resolved]
  - Acquired cardiac septal defect [Unknown]
  - Fall [Recovered/Resolved]
  - Vein disorder [Unknown]
  - Intervertebral disc protrusion [Unknown]
  - Rapid eye movements sleep abnormal [Unknown]
  - Hypoaesthesia [Unknown]
  - Vitamin D decreased [Recovering/Resolving]
  - Weight increased [Recovering/Resolving]
  - Malaise [Unknown]
